FAERS Safety Report 8477449 (Version 4)
Quarter: 2013Q3

REPORT INFORMATION
  Report Type: Spontaneous
  Country: US (occurrence: US)
  Receive Date: 20120327
  Receipt Date: 20130710
  Transmission Date: 20140515
  Serious: Yes (Other)
  Sender: FDA-Public Use
  Company Number: US-PFIZER INC-2012074022

PATIENT
  Age: 55 Year
  Sex: Female
  Weight: 100 kg

DRUGS (11)
  1. LYRICA [Suspect]
     Indication: BLADDER DISORDER
     Dosage: 300 MG, 1X/DAY
     Route: 048
     Dates: start: 2004
  2. LYRICA [Suspect]
     Indication: FIBROMYALGIA
     Dosage: 150 MG, 2X/DAY
     Route: 048
  3. LYRICA [Suspect]
     Indication: PAIN
     Dosage: 150 MG, 3X/DAY
  4. LYRICA [Suspect]
     Indication: NERVE INJURY
     Dosage: 300 MG, 2X/DAY (150 MG 2 BID)
     Route: 048
  5. LYRICA [Suspect]
     Indication: PAIN
  6. LYRICA [Suspect]
     Indication: INTERVERTEBRAL DISC DEGENERATION
  7. LYRICA [Suspect]
     Indication: MIGRAINE
  8. LEVOTHROID [Concomitant]
     Indication: HYPOTHYROIDISM
     Dosage: 150 UG, 1X/DAY
  9. PERCOCET [Concomitant]
     Dosage: UNK, AS NEEDED
  10. ZOLOFT [Concomitant]
     Dosage: UNK, 1X/DAY
  11. OXYCODONE [Concomitant]
     Dosage: UNK
     Dates: start: 2012, end: 2013

REACTIONS (7)
  - Off label use [Unknown]
  - Cardiac disorder [Unknown]
  - Blood cholesterol increased [Unknown]
  - Palpitations [Unknown]
  - Drug withdrawal syndrome [Unknown]
  - Laryngitis [Not Recovered/Not Resolved]
  - Dysphonia [Not Recovered/Not Resolved]
